FAERS Safety Report 6687542-3 (Version None)
Quarter: 2010Q2

REPORT INFORMATION
  Report Type: 
  Country: None (occurrence: None)
  Receive Date: 20100416
  Receipt Date: 20100416
  Transmission Date: 20101027
  Serious: No
  Sender: FDA-Public Use
  Company Number: None

PATIENT
  Age: 38 Year
  Sex: Female
  Weight: 59.8748 kg

DRUGS (1)
  1. MIRENA [Suspect]
     Indication: CONTRACEPTION
     Dates: start: 20090420, end: 20100411

REACTIONS (7)
  - BELLIGERENCE [None]
  - IMPATIENCE [None]
  - IRRITABILITY [None]
  - MEDICAL DEVICE PAIN [None]
  - MOOD SWINGS [None]
  - MUSCLE SPASMS [None]
  - PERSONALITY CHANGE [None]
